FAERS Safety Report 12375420 (Version 1)
Quarter: 2016Q2

REPORT INFORMATION
  Report Type: Spontaneous
  Country: RS (occurrence: RS)
  Receive Date: 20160517
  Receipt Date: 20160517
  Transmission Date: 20160815
  Serious: Yes (Other)
  Sender: FDA-Public Use
  Company Number: RS-ACTAVIS-2016-09606

PATIENT
  Sex: Female
  Weight: 63 kg

DRUGS (2)
  1. ASPIRIN PLUS C [Concomitant]
     Active Substance: ASCORBIC ACID\ASPIRIN
     Indication: NASOPHARYNGITIS
     Dosage: 1 DF, DAILY
     Route: 048
     Dates: start: 201505, end: 201506
  2. ACYCLOVIR (UNKNOWN) [Suspect]
     Active Substance: ACYCLOVIR
     Indication: HERPES SIMPLEX
     Dosage: 800 MG, DAILY
     Route: 048

REACTIONS (8)
  - Hepatic enzyme increased [Recovered/Resolved with Sequelae]
  - Haematoma [Recovered/Resolved with Sequelae]
  - Malaise [Recovered/Resolved with Sequelae]
  - Confusional state [Recovered/Resolved with Sequelae]
  - Anxiety [Recovered/Resolved with Sequelae]
  - Abdominal distension [Recovered/Resolved with Sequelae]
  - Dyspnoea [Recovered/Resolved with Sequelae]
  - Face oedema [Recovered/Resolved with Sequelae]

NARRATIVE: CASE EVENT DATE: 2015
